FAERS Safety Report 8409480-8 (Version None)
Quarter: 2012Q2

REPORT INFORMATION
  Report Type: 
  Country: None (occurrence: None)
  Receive Date: 20120531
  Receipt Date: 20120531
  Transmission Date: 20120825
  Serious: Yes (Hospitalization)
  Sender: FDA-Public Use
  Company Number: None

PATIENT
  Age: 58 Year
  Sex: Male
  Weight: 106.5953 kg

DRUGS (1)
  1. ZOLPIDEM [Suspect]
     Indication: INSOMNIA
     Dosage: 1 TABLET ONCE AT BEDTIME PO
     Route: 048
     Dates: start: 20120506, end: 20120514

REACTIONS (8)
  - INCORRECT DRUG ADMINISTRATION DURATION [None]
  - INCORRECT DOSE ADMINISTERED [None]
  - DYSARTHRIA [None]
  - CONFUSIONAL STATE [None]
  - DISORIENTATION [None]
  - AMNESIA [None]
  - INSOMNIA [None]
  - COGNITIVE DISORDER [None]
